FAERS Safety Report 20749976 (Version 3)
Quarter: 2022Q4

REPORT INFORMATION
  Report Type: Spontaneous
  Country: US (occurrence: US)
  Receive Date: 20220426
  Receipt Date: 20221012
  Transmission Date: 20230112
  Serious: Yes (Hospitalization, Other)
  Sender: FDA-Public Use
  Company Number: US-PFIZER INC-202200564397

PATIENT
  Age: 67 Year
  Sex: Female

DRUGS (2)
  1. THEOPHYLLINE [Interacting]
     Active Substance: THEOPHYLLINE
     Indication: Asthma
     Dosage: 600 MG, DAILY
  2. FLUVOXAMINE [Interacting]
     Active Substance: FLUVOXAMINE
     Indication: COVID-19
     Dosage: UNK

REACTIONS (5)
  - Drug interaction [Recovering/Resolving]
  - Toxicity to various agents [Recovering/Resolving]
  - Hallucination [Recovering/Resolving]
  - Atrial fibrillation [Recovering/Resolving]
  - Seizure [Recovering/Resolving]
